FAERS Safety Report 11525671 (Version 2)
Quarter: 2015Q4

REPORT INFORMATION
  Report Type: Spontaneous
  Country: US (occurrence: US)
  Receive Date: 20150918
  Receipt Date: 20151012
  Transmission Date: 20160304
  Serious: No
  Sender: FDA-Public Use
  Company Number: ALCN2015US005941

PATIENT
  Age: 75 Year
  Sex: Female

DRUGS (1)
  1. SYSTANE VITAMIN OMEGA-3 SUPPLEMENT [Suspect]
     Active Substance: OMEGA-3 FATTY ACIDS
     Indication: PRODUCT USED FOR UNKNOWN INDICATION
     Dosage: 1 DF, ONCE/SINGLE
     Route: 048
     Dates: start: 20150918, end: 20150918

REACTIONS (2)
  - Oropharyngeal pain [Recovered/Resolved]
  - Foreign body [Recovered/Resolved]

NARRATIVE: CASE EVENT DATE: 20150918
